FAERS Safety Report 8111329-8 (Version None)
Quarter: 2012Q1

REPORT INFORMATION
  Report Type: 
  Country: None (occurrence: None)
  Receive Date: 20120203
  Receipt Date: 20110906
  Transmission Date: 20120608
  Serious: No
  Sender: FDA-Public Use
  Company Number: US-GLAXOSMITHKLINE-A0943466A

PATIENT
  Sex: Male

DRUGS (1)
  1. LAMICTAL [Suspect]
     Dosage: 350MG PER DAY
     Route: 048

REACTIONS (1)
  - RASH [None]
